FAERS Safety Report 8124642-5 (Version None)
Quarter: 2012Q1

REPORT INFORMATION
  Report Type: 
  Country: None (occurrence: None)
  Receive Date: 20120209
  Receipt Date: 20120209
  Transmission Date: 20120608
  Serious: Yes (Congenital Anomaly)
  Sender: FDA-Public Use
  Company Number: None

PATIENT
  Sex: Male
  Weight: 4.5359 kg

DRUGS (1)
  1. PHEN-FEN [Suspect]
     Indication: WEIGHT CONTROL
     Dates: start: 19960901, end: 19961201

REACTIONS (2)
  - FOETAL EXPOSURE DURING PREGNANCY [None]
  - CEREBRAL PALSY [None]
